FAERS Safety Report 8356506 (Version 3)
Quarter: 2014Q2

REPORT INFORMATION
  Report Type: Report from Study
  Country: US (occurrence: US)
  Receive Date: 20120126
  Receipt Date: 20140603
  Transmission Date: 20141212
  Serious: Yes (Hospitalization, Disabling)
  Sender: FDA-Public Use
  Company Number: US-NAPPMUNDI-USA-2012-0081137

PATIENT
  Sex: Male

DRUGS (1)
  1. OXY CR TAB [Suspect]
     Indication: PAIN IN EXTREMITY
     Dosage: 160 MG, Q12H
     Route: 048

REACTIONS (7)
  - Peripheral vascular disorder [Unknown]
  - Diabetes mellitus inadequate control [Unknown]
  - Hypertension [Unknown]
  - Skin ulcer [Unknown]
  - Chronic obstructive pulmonary disease [Unknown]
  - Post procedural complication [Unknown]
  - Oedema peripheral [Unknown]
